FAERS Safety Report 22121815 (Version 10)
Quarter: 2024Q1

REPORT INFORMATION
  Report Type: Report from Study
  Country: CN (occurrence: CN)
  Receive Date: 20230321
  Receipt Date: 20240312
  Transmission Date: 20240410
  Serious: Yes (Other)
  Sender: FDA-Public Use
  Company Number: CN-002147023-NVSC2022CN178213

PATIENT
  Age: 42 Year
  Sex: Male

DRUGS (73)
  1. COSENTYX [Suspect]
     Active Substance: SECUKINUMAB
     Indication: Psoriasis
     Dosage: 300 MG
     Route: 058
     Dates: start: 20220116
  2. COSENTYX [Suspect]
     Active Substance: SECUKINUMAB
     Dosage: 300 MG
     Route: 058
     Dates: start: 20220123
  3. COSENTYX [Suspect]
     Active Substance: SECUKINUMAB
     Dosage: 300 MG
     Route: 058
     Dates: start: 20220130
  4. COSENTYX [Suspect]
     Active Substance: SECUKINUMAB
     Dosage: 300 MG
     Route: 058
     Dates: start: 20220206
  5. COSENTYX [Suspect]
     Active Substance: SECUKINUMAB
     Dosage: 300 MG
     Route: 058
     Dates: start: 20220213
  6. COSENTYX [Suspect]
     Active Substance: SECUKINUMAB
     Dosage: 300 MG
     Route: 058
     Dates: start: 20220312
  7. COSENTYX [Suspect]
     Active Substance: SECUKINUMAB
     Dosage: 300 MG
     Route: 058
     Dates: start: 20220417
  8. COSENTYX [Suspect]
     Active Substance: SECUKINUMAB
     Dosage: 300 MG
     Route: 058
     Dates: start: 20220522
  9. COSENTYX [Suspect]
     Active Substance: SECUKINUMAB
     Dosage: 300 MG
     Route: 058
     Dates: start: 20220625
  10. COSENTYX [Suspect]
     Active Substance: SECUKINUMAB
     Dosage: 300 MG
     Route: 058
     Dates: start: 20220731
  11. COSENTYX [Suspect]
     Active Substance: SECUKINUMAB
     Dosage: 300 MG
     Route: 058
     Dates: start: 20220902
  12. COSENTYX [Suspect]
     Active Substance: SECUKINUMAB
     Dosage: 300 MG
     Route: 058
     Dates: start: 20221014
  13. COSENTYX [Suspect]
     Active Substance: SECUKINUMAB
     Dosage: 300 MG
     Route: 058
     Dates: start: 20221113
  14. COSENTYX [Suspect]
     Active Substance: SECUKINUMAB
     Dosage: 300 MG
     Route: 058
     Dates: start: 20221217
  15. COSENTYX [Suspect]
     Active Substance: SECUKINUMAB
     Dosage: 300 MG
     Route: 058
     Dates: start: 20230113
  16. COSENTYX [Suspect]
     Active Substance: SECUKINUMAB
     Dosage: 300 MG, QMO
     Route: 065
  17. COSENTYX [Suspect]
     Active Substance: SECUKINUMAB
     Dosage: 300 MG, Q4W
     Route: 065
  18. DESONIDE [Concomitant]
     Active Substance: DESONIDE
     Indication: Product used for unknown indication
     Dosage: 0.75 G
     Route: 061
     Dates: start: 20210503, end: 20220116
  19. DESONIDE [Concomitant]
     Active Substance: DESONIDE
     Dosage: UNK
     Route: 061
     Dates: start: 20220522
  20. EBASTINE [Concomitant]
     Active Substance: EBASTINE
     Indication: Product used for unknown indication
     Dosage: 20 MG
     Route: 048
     Dates: start: 20210503, end: 2021
  21. METOPROLOL TARTRATE [Concomitant]
     Active Substance: METOPROLOL TARTRATE
     Indication: Hypertension
     Dosage: 47.5 MG
     Route: 048
     Dates: start: 2016
  22. AMLODIPINE [Concomitant]
     Active Substance: AMLODIPINE BESYLATE
     Indication: Hypertension
     Dosage: 80 MG
     Route: 048
     Dates: start: 2018
  23. AMLODIPINE [Concomitant]
     Active Substance: AMLODIPINE BESYLATE
     Dosage: 160 MG
     Route: 048
     Dates: start: 20200122
  24. BAI SAI NUO [Concomitant]
     Indication: Hepatic function abnormal
     Dosage: 25 MG
     Route: 048
     Dates: start: 20220108, end: 202201
  25. ERYTHROMYCIN [Concomitant]
     Active Substance: ERYTHROMYCIN
     Indication: Product used for unknown indication
     Dosage: UNK (AS NEEDED)
     Route: 061
     Dates: start: 20221217
  26. BUTENAFINE HYDROCHLORIDE [Concomitant]
     Active Substance: BUTENAFINE HYDROCHLORIDE
     Indication: Product used for unknown indication
     Dosage: UNK (AS NEEDED)
     Route: 061
     Dates: start: 20221217
  27. MIDAZOLAM [Concomitant]
     Active Substance: MIDAZOLAM
     Indication: Sleep apnoea syndrome
     Dosage: 5 MG
     Route: 042
     Dates: start: 20221001, end: 20221001
  28. MIDAZOLAM [Concomitant]
     Active Substance: MIDAZOLAM
     Indication: Chronic tonsillitis
  29. CEFMETAZOLE SODIUM [Concomitant]
     Active Substance: CEFMETAZOLE SODIUM
     Indication: Sleep apnoea syndrome
     Dosage: 1.5 G
     Route: 041
     Dates: start: 20220920, end: 20220929
  30. CEFMETAZOLE SODIUM [Concomitant]
     Active Substance: CEFMETAZOLE SODIUM
     Indication: Chronic tonsillitis
  31. SUFENTANIL [Concomitant]
     Active Substance: SUFENTANIL
     Indication: Sleep apnoea syndrome
     Dosage: 50 MG
     Route: 042
     Dates: start: 20221001, end: 20221001
  32. SUFENTANIL [Concomitant]
     Active Substance: SUFENTANIL
     Indication: Chronic tonsillitis
  33. ATRACURIUM BESYLATE [Concomitant]
     Active Substance: ATRACURIUM BESYLATE
     Indication: Sleep apnoea syndrome
     Dosage: 20 MG
     Route: 042
     Dates: start: 20221001, end: 20221001
  34. ATRACURIUM BESYLATE [Concomitant]
     Active Substance: ATRACURIUM BESYLATE
     Indication: Chronic tonsillitis
  35. ETOMIDATE [Concomitant]
     Active Substance: ETOMIDATE
     Indication: Sleep apnoea syndrome
     Dosage: 20 MG
     Route: 042
     Dates: start: 20221001, end: 20221001
  36. ETOMIDATE [Concomitant]
     Active Substance: ETOMIDATE
     Indication: Chronic tonsillitis
  37. SEVOFLURANE [Concomitant]
     Active Substance: SEVOFLURANE
     Indication: Sleep apnoea syndrome
     Dosage: 20 ML
     Dates: start: 20221001, end: 20221001
  38. SEVOFLURANE [Concomitant]
     Active Substance: SEVOFLURANE
     Indication: Chronic tonsillitis
  39. REMIFENTANIL [Concomitant]
     Active Substance: REMIFENTANIL
     Indication: Sleep apnoea syndrome
     Dosage: 2 MG
     Route: 042
     Dates: start: 20221001, end: 20221001
  40. REMIFENTANIL [Concomitant]
     Active Substance: REMIFENTANIL
     Indication: Chronic tonsillitis
  41. DEXAMETHASONE [Concomitant]
     Active Substance: DEXAMETHASONE
     Indication: Sleep apnoea syndrome
     Dosage: 10 MG
     Route: 041
     Dates: start: 20221001, end: 20221001
  42. DEXAMETHASONE [Concomitant]
     Active Substance: DEXAMETHASONE
     Indication: Chronic tonsillitis
  43. NEOSTIGMINE [Concomitant]
     Active Substance: NEOSTIGMINE
     Indication: Sleep apnoea syndrome
     Dosage: 0.25 MG
     Route: 042
     Dates: start: 20221001, end: 20221001
  44. NEOSTIGMINE [Concomitant]
     Active Substance: NEOSTIGMINE
     Indication: Chronic tonsillitis
  45. EPHEDRINE HYDROCHLORIDE AND NITROFURAZONE [Concomitant]
     Indication: Sleep apnoea syndrome
     Dosage: 0.05 ML
     Route: 045
     Dates: start: 20221001, end: 20221001
  46. EPHEDRINE HYDROCHLORIDE AND NITROFURAZONE [Concomitant]
     Indication: Chronic tonsillitis
     Dosage: 30 ML
     Route: 045
     Dates: start: 20221120, end: 20221120
  47. EPHEDRINE HYDROCHLORIDE AND NITROFURAZONE [Concomitant]
     Indication: Rhinitis
  48. POTASSIUM CHLORIDE [Concomitant]
     Active Substance: POTASSIUM CHLORIDE
     Indication: Sleep apnoea syndrome
     Dosage: 10 ML
     Route: 041
     Dates: start: 20221001, end: 20221001
  49. POTASSIUM CHLORIDE [Concomitant]
     Active Substance: POTASSIUM CHLORIDE
     Indication: Chronic tonsillitis
  50. VITAMIN C [Concomitant]
     Active Substance: ASCORBIC ACID
     Indication: Sleep apnoea syndrome
     Dosage: 2 G
     Route: 041
     Dates: start: 20221001, end: 20221001
  51. VITAMIN C [Concomitant]
     Active Substance: ASCORBIC ACID
     Indication: Chronic tonsillitis
  52. FENTANYL [Concomitant]
     Active Substance: FENTANYL\FENTANYL CITRATE
     Indication: Sleep apnoea syndrome
     Dosage: 0.1 MG
     Route: 042
     Dates: start: 20221001, end: 20221001
  53. FENTANYL [Concomitant]
     Active Substance: FENTANYL\FENTANYL CITRATE
     Indication: Chronic tonsillitis
  54. METHYLPREDNISOLONE [Concomitant]
     Active Substance: METHYLPREDNISOLONE
     Indication: Sleep apnoea syndrome
     Dosage: 80 MG
     Route: 041
     Dates: start: 20221001, end: 20221002
  55. METHYLPREDNISOLONE [Concomitant]
     Active Substance: METHYLPREDNISOLONE
     Indication: Chronic tonsillitis
  56. HAEMOCOAGULASE [Concomitant]
     Indication: Sleep apnoea syndrome
     Dosage: 2 IU
     Route: 041
     Dates: start: 20221001, end: 20221002
  57. HAEMOCOAGULASE [Concomitant]
     Indication: Chronic tonsillitis
  58. ESOMEPRAZOLE MAGNESIUM [Concomitant]
     Active Substance: ESOMEPRAZOLE\ESOMEPRAZOLE MAGNESIUM\ESOMEPRAZOLE MAGNESIUM DIHYDRATE
     Indication: Sleep apnoea syndrome
     Dosage: 1 DOSAGE FORM (ENTERIC COATED TABLET)
     Route: 048
     Dates: start: 20221001, end: 20221002
  59. ESOMEPRAZOLE MAGNESIUM [Concomitant]
     Active Substance: ESOMEPRAZOLE\ESOMEPRAZOLE MAGNESIUM\ESOMEPRAZOLE MAGNESIUM DIHYDRATE
     Indication: Chronic tonsillitis
  60. BUDESONIDE [Concomitant]
     Active Substance: BUDESONIDE
     Indication: Sleep apnoea syndrome
     Dosage: 1 MG
     Dates: start: 20221001, end: 20221015
  61. BUDESONIDE [Concomitant]
     Active Substance: BUDESONIDE
     Indication: Chronic tonsillitis
  62. CEFACLOR [Concomitant]
     Active Substance: CEFACLOR
     Indication: Sleep apnoea syndrome
     Dosage: 0.25 G
     Route: 048
     Dates: start: 20221003, end: 20221010
  63. CEFACLOR [Concomitant]
     Active Substance: CEFACLOR
     Indication: Chronic tonsillitis
  64. CEFTRIAXONE [Concomitant]
     Active Substance: CEFTRIAXONE\CEFTRIAXONE SODIUM
     Indication: Sleep apnoea syndrome
     Dosage: 2 G
     Route: 041
     Dates: start: 20221009, end: 20221011
  65. CEFTRIAXONE [Concomitant]
     Active Substance: CEFTRIAXONE\CEFTRIAXONE SODIUM
     Indication: Chronic tonsillitis
  66. LIDOCAINE [Concomitant]
     Active Substance: LIDOCAINE
     Indication: Rhinitis
     Dosage: 0.1 G
     Route: 041
     Dates: start: 20221120, end: 20221120
  67. TETRACAINE [Concomitant]
     Active Substance: TETRACAINE
     Indication: Rhinitis
     Dosage: 100 ML
     Route: 061
     Dates: start: 20221120, end: 20221120
  68. EPINEPHRINE [Concomitant]
     Active Substance: EPINEPHRINE
     Indication: Rhinitis
     Dosage: 3 MG
     Route: 061
     Dates: start: 20221120, end: 20221120
  69. CLARITHROMYCIN [Concomitant]
     Active Substance: CLARITHROMYCIN
     Indication: Rhinitis
     Dosage: 1 DOSAGE FORM
     Route: 048
     Dates: start: 20221120, end: 20221126
  70. FURANCILIN [Concomitant]
     Indication: Sleep apnoea syndrome
     Dosage: 10 ML
     Route: 065
     Dates: start: 20221001, end: 20221015
  71. FURANCILIN [Concomitant]
     Indication: Chronic tonsillitis
  72. NITROFURAZONE [Concomitant]
     Active Substance: NITROFURAZONE
     Indication: Sleep apnoea syndrome
     Dosage: 10 ML
     Route: 065
     Dates: start: 20221001, end: 20221015
  73. NITROFURAZONE [Concomitant]
     Active Substance: NITROFURAZONE
     Indication: Chronic tonsillitis

REACTIONS (8)
  - Pharyngeal stenosis [Recovered/Resolved]
  - Gastroenteritis [Recovered/Resolved]
  - Gastroenteritis [Recovered/Resolved]
  - Sinusitis [Not Recovered/Not Resolved]
  - COVID-19 [Recovered/Resolved]
  - Pyrexia [Recovered/Resolved]
  - Lymphadenopathy [Not Recovered/Not Resolved]
  - Upper respiratory tract infection [Recovered/Resolved]

NARRATIVE: CASE EVENT DATE: 20220318
